FAERS Safety Report 12427441 (Version 3)
Quarter: 2016Q3

REPORT INFORMATION
  Report Type: Spontaneous
  Country: US (occurrence: US)
  Receive Date: 20160602
  Receipt Date: 20160718
  Transmission Date: 20161109
  Serious: Yes (Hospitalization, Other)
  Sender: FDA-Public Use
  Company Number: US-STRIDES ARCOLAB LIMITED-2016SP004578

PATIENT

DRUGS (1)
  1. IBUPROFEN. [Suspect]
     Active Substance: IBUPROFEN
     Indication: PRODUCT USED FOR UNKNOWN INDICATION
     Dosage: 12 G,TOTAL, 30 PILLS (400 MG)
     Route: 048

REACTIONS (12)
  - Thrombotic thrombocytopenic purpura [Recovered/Resolved]
  - Haematuria [Unknown]
  - Sinus tachycardia [Unknown]
  - Unresponsive to stimuli [Unknown]
  - Cerebrovascular accident [Unknown]
  - Conjunctival pallor [Unknown]
  - Ocular icterus [Unknown]
  - Vitiligo [Unknown]
  - Muscular weakness [Unknown]
  - Suicide attempt [Unknown]
  - Acute myocardial infarction [Recovered/Resolved]
  - Intentional overdose [Unknown]
